FAERS Safety Report 7469773-8 (Version None)
Quarter: 2011Q2

REPORT INFORMATION
  Report Type: 
  Country: None (occurrence: None)
  Receive Date: 20110510
  Receipt Date: 20110427
  Transmission Date: 20111010
  Serious: Yes (Hospitalization)
  Sender: FDA-Public Use
  Company Number: DE-CELGENEUS-062-21660-11043498

PATIENT
  Age: 78 Year
  Sex: Female

DRUGS (1)
  1. ABRAXANE [Suspect]

REACTIONS (3)
  - GASTRITIS [None]
  - MUCOSAL INFLAMMATION [None]
  - OESOPHAGITIS [None]
